FAERS Safety Report 8880665 (Version 1)
Quarter: 2012Q4

REPORT INFORMATION
  Report Type: 
  Country: CA (occurrence: CA)
  Receive Date: 20121101
  Receipt Date: 20121101
  Transmission Date: 20130627
  Serious: Yes (Hospitalization)
  Sender: FDA-Public Use
  Company Number: CA-ASTRAZENECA-2012SE81486

PATIENT
  Age: 63 Year
  Sex: Male
  Weight: 99 kg

DRUGS (5)
  1. HYDROCHLOROTHIAZIDE [Suspect]
     Route: 048
  2. ZESTRIL [Suspect]
     Route: 048
  3. ALLOPURINOL [Concomitant]
     Route: 048
  4. ENTERIC COATED ASA [Concomitant]
     Route: 048
  5. METFORMIN [Concomitant]
     Route: 048

REACTIONS (1)
  - Pancreatitis necrotising [Recovered/Resolved]
